FAERS Safety Report 9946557 (Version 1)
Quarter: 2014Q1

REPORT INFORMATION
  Report Type: Spontaneous
  Country: US (occurrence: US)
  Receive Date: 20140303
  Receipt Date: 20140303
  Transmission Date: 20141002
  Serious: No
  Sender: FDA-Public Use
  Company Number: US-AMGEN-USASP2014002208

PATIENT
  Age: 56 Year
  Sex: Male

DRUGS (1)
  1. ENBREL [Suspect]
     Indication: RHEUMATOID ARTHRITIS
     Dosage: 50 MG, QWK
     Route: 065
     Dates: start: 20060401

REACTIONS (5)
  - Inflammation [Not Recovered/Not Resolved]
  - Nail disorder [Not Recovered/Not Resolved]
  - Erythema [Not Recovered/Not Resolved]
  - Macule [Not Recovered/Not Resolved]
  - Joint swelling [Not Recovered/Not Resolved]
